FAERS Safety Report 4647293-3 (Version None)
Quarter: 2005Q2

REPORT INFORMATION
  Report Type: 
  Country: None (occurrence: None)
  Receive Date: 20050425
  Receipt Date: 20050425
  Transmission Date: 20051028
  Serious: Yes (Hospitalization)
  Sender: FDA-Public Use
  Company Number: None

PATIENT
  Sex: Male
  Weight: 81.1939 kg

DRUGS (2)
  1. VANCOMYCIN [Suspect]
     Indication: BACTERAEMIA
     Dosage: 1000 MG Q12H INTRAVENOU
     Route: 042
     Dates: start: 20050128, end: 20050211
  2. GATIFLOXACIN [Concomitant]

REACTIONS (3)
  - CATHETER RELATED COMPLICATION [None]
  - PRURITUS [None]
  - RASH GENERALISED [None]
